FAERS Safety Report 8174273-6 (Version None)
Quarter: 2012Q1

REPORT INFORMATION
  Report Type: 
  Country: None (occurrence: None)
  Receive Date: 20120227
  Receipt Date: 20120215
  Transmission Date: 20120608
  Serious: Yes (Death, Hospitalization)
  Sender: FDA-Public Use
  Company Number: 2012-00223

PATIENT
  Age: 39 Year
  Sex: Female

DRUGS (1)
  1. CEFIXIME [Suspect]
     Indication: OTITIS MEDIA
     Dosage: 400 MG (400 MG,1 IN 1 D),PER ORAL
     Route: 048
     Dates: start: 20111222, end: 20120109

REACTIONS (2)
  - NO THERAPEUTIC RESPONSE [None]
  - SERUM SICKNESS [None]
